FAERS Safety Report 19052079 (Version 1)
Quarter: 2021Q1

REPORT INFORMATION
  Report Type: Spontaneous
  Country: US (occurrence: US)
  Receive Date: 20210324
  Receipt Date: 20210324
  Transmission Date: 20210420
  Serious: No
  Sender: FDA-Public Use
  Company Number: US-VIELABIO-VIE-2020-US-000032

PATIENT
  Age: 40 Year
  Sex: Female

DRUGS (5)
  1. TYLENOL [Concomitant]
     Active Substance: ACETAMINOPHEN
     Indication: PRODUCT USED FOR UNKNOWN INDICATION
     Dosage: UNKNOWN
  2. STEROIDS [Concomitant]
     Active Substance: UNSPECIFIED INGREDIENT
     Indication: PRODUCT USED FOR UNKNOWN INDICATION
     Dosage: UNKNOWN
  3. BENADRYL [Concomitant]
     Active Substance: DIPHENHYDRAMINE HYDROCHLORIDE
     Indication: PRODUCT USED FOR UNKNOWN INDICATION
     Dosage: UNKNOWN
  4. LAMICTAL [Concomitant]
     Active Substance: LAMOTRIGINE
     Indication: NEUROPATHY PERIPHERAL
     Dosage: UNKNOWN
  5. UPLIZNA [Suspect]
     Active Substance: INEBILIZUMAB-CDON
     Indication: NEUROMYELITIS OPTICA SPECTRUM DISORDER
     Dosage: 300 MILLIGRAM
     Route: 042
     Dates: start: 20201217

REACTIONS (1)
  - Urine abnormality [Recovered/Resolved]

NARRATIVE: CASE EVENT DATE: 20201219
